FAERS Safety Report 6159316-3 (Version None)
Quarter: 2009Q2

REPORT INFORMATION
  Report Type: 
  Country: None (occurrence: None)
  Receive Date: 20090417
  Receipt Date: 20090406
  Transmission Date: 20091009
  Serious: Yes (Hospitalization, Other)
  Sender: FDA-Public Use
  Company Number: FR-ABBOTT-08P-056-0478268-00

PATIENT
  Sex: Female
  Weight: 54 kg

DRUGS (3)
  1. HUMIRA [Suspect]
     Indication: CROHN'S DISEASE
     Route: 058
     Dates: start: 20080708, end: 20080722
  2. HUMIRA [Suspect]
     Route: 058
     Dates: start: 20080923
  3. SOLUPRED [Concomitant]
     Indication: BEHCET'S SYNDROME
     Dates: start: 20080804, end: 20080808

REACTIONS (3)
  - ALANINE AMINOTRANSFERASE INCREASED [None]
  - APHTHOUS STOMATITIS [None]
  - BEHCET'S SYNDROME [None]
